FAERS Safety Report 5652883-5 (Version None)
Quarter: 2008Q1

REPORT INFORMATION
  Report Type: 
  Country: None (occurrence: None)
  Receive Date: 20080306
  Receipt Date: 20080222
  Transmission Date: 20080703
  Serious: Yes (Death)
  Sender: FDA-Public Use
  Company Number: FR-SANOFI-SYNTHELABO-A02200800689

PATIENT
  Sex: Male

DRUGS (4)
  1. FOLINIC ACID [Concomitant]
     Route: 065
  2. FLUOROURACIL [Concomitant]
     Route: 042
  3. ELOXATIN [Suspect]
     Indication: CARCINOID TUMOUR OF THE APPENDIX
     Route: 033
     Dates: start: 20071016, end: 20071016
  4. IRINOTECAN [Concomitant]
     Route: 042

REACTIONS (2)
  - SEPTIC SHOCK [None]
  - SHOCK HAEMORRHAGIC [None]
